FAERS Safety Report 7249659-4 (Version None)
Quarter: 2011Q1

REPORT INFORMATION
  Report Type: 
  Country: None (occurrence: None)
  Receive Date: 20110128
  Receipt Date: 20110124
  Transmission Date: 20110831
  Serious: No
  Sender: FDA-Public Use
  Company Number: US-JNJFOC-20110106881

PATIENT
  Sex: Female

DRUGS (4)
  1. FENTANYL-100 [Suspect]
     Indication: BACK PAIN
     Route: 062
  2. FENTANYL-100 [Suspect]
     Indication: PAIN IN EXTREMITY
     Route: 062
  3. DICLOFENAC SODIUM [Concomitant]
     Indication: BREAKTHROUGH PAIN
     Route: 048
  4. FENTANYL-100 [Suspect]
     Indication: ARTHRALGIA
     Route: 062

REACTIONS (4)
  - PRODUCT QUALITY ISSUE [None]
  - DERMATITIS CONTACT [None]
  - DRUG DOSE OMISSION [None]
  - PRODUCT ADHESION ISSUE [None]
